FAERS Safety Report 7625943-7 (Version None)
Quarter: 2011Q3

REPORT INFORMATION
  Report Type: 
  Country: None (occurrence: None)
  Receive Date: 20110721
  Receipt Date: 20110721
  Transmission Date: 20111222
  Serious: Yes (Other)
  Sender: FDA-Public Use
  Company Number: None

PATIENT
  Age: 57 Year
  Sex: Male
  Weight: 81.6 kg

DRUGS (2)
  1. ZORTRESS [Suspect]
     Indication: PROPHYLAXIS AGAINST TRANSPLANT REJECTION
     Dosage: 0.75 MG
     Route: 048
  2. ZORTRESS [Concomitant]
     Dosage: 0.75 MG -PRESCRIBED DOSE-
     Route: 048

REACTIONS (4)
  - PYREXIA [None]
  - INCORRECT DOSE ADMINISTERED [None]
  - FATIGUE [None]
  - TULARAEMIA [None]
